FAERS Safety Report 11311873 (Version 1)
Quarter: 2015Q3

REPORT INFORMATION
  Report Type: Spontaneous
  Country: US (occurrence: None)
  Receive Date: 20150723
  Receipt Date: 20150723
  Transmission Date: 20151125
  Serious: Yes (Other)
  Sender: FDA-Public Use
  Company Number: KAD201507-002319

PATIENT

DRUGS (2)
  1. SOFOSBUVIR (SOFOSBUVIR) [Suspect]
     Active Substance: SOFOSBUVIR
     Indication: HEPATITIS C
  2. RIBAVIRIN(RIBAVIRIN) [Suspect]
     Active Substance: RIBAVIRIN
     Indication: HEPATITIS C

REACTIONS (1)
  - Bleeding varicose vein [None]
